FAERS Safety Report 6407742-7 (Version None)
Quarter: 2009Q4

REPORT INFORMATION
  Report Type: 
  Country: None (occurrence: None)
  Receive Date: 20091020
  Receipt Date: 20091011
  Transmission Date: 20100525
  Serious: Yes (Death)
  Sender: FDA-Public Use
  Company Number: GB-AVENTIS-200921667GDDC

PATIENT
  Age: 58 Year
  Sex: Male

DRUGS (4)
  1. GLYBURIDE [Suspect]
  2. PEGINTERFERON ALFA-2A [Suspect]
     Route: 058
     Dates: start: 20090608, end: 20090918
  3. RIBAVIRIN [Suspect]
     Route: 048
     Dates: start: 20090608, end: 20090924
  4. METFORMIN [Suspect]

REACTIONS (1)
  - DEATH [None]
